FAERS Safety Report 10186542 (Version 2)
Quarter: 2014Q2

REPORT INFORMATION
  Report Type: Report from Study
  Country: US (occurrence: US)
  Receive Date: 20140521
  Receipt Date: 20140521
  Transmission Date: 20141212
  Serious: Yes (Hospitalization)
  Sender: FDA-Public Use
  Company Number: PHEH2014US008063

PATIENT
  Age: 14 Year
  Sex: Female
  Weight: 61 kg

DRUGS (10)
  1. TOBI PODHALER [Suspect]
     Indication: CYSTIC FIBROSIS
     Dosage: 112 MG, BID
     Route: 055
     Dates: start: 201307
  2. PULMOZYME [Concomitant]
     Dosage: UNK UKN, UNK
  3. CREON [Concomitant]
     Dosage: UNK UKN, UNK
  4. SODIUM CHLORIDE [Concomitant]
     Dosage: UNK UKN, UNK
  5. AZITHROMYCIN [Concomitant]
     Dosage: UNK UKN, UNK
  6. ALBUTEROL [Concomitant]
     Dosage: UNK UKN, UNK
  7. AQUADEKS [Concomitant]
     Dosage: UNK UKN, UNK
  8. SINGULAIR [Concomitant]
     Dosage: UNK UKN, UNK
  9. REGLAN                                  /USA/ [Concomitant]
     Dosage: UNK UKN, UNK
  10. PREVACID [Concomitant]
     Dosage: UNK UKN, UNK

REACTIONS (3)
  - Cystic fibrosis [Recovering/Resolving]
  - Condition aggravated [Recovering/Resolving]
  - Respiratory tract irritation [Recovering/Resolving]
